FAERS Safety Report 5704080-2 (Version None)
Quarter: 2008Q2

REPORT INFORMATION
  Report Type: 
  Country: None (occurrence: None)
  Receive Date: 20080414
  Receipt Date: 20080409
  Transmission Date: 20081010
  Serious: Yes (Other)
  Sender: FDA-Public Use
  Company Number: DE-BRISTOL-MYERS SQUIBB COMPANY-14147516

PATIENT
  Age: 11 Year
  Sex: Male

DRUGS (5)
  1. ETOPOSIDE [Suspect]
     Indication: BONE MARROW CONDITIONING REGIMEN
  2. THYMOGLOBULIN [Suspect]
     Indication: BONE MARROW CONDITIONING REGIMEN
  3. RADIATION THERAPY [Suspect]
     Indication: BONE MARROW CONDITIONING REGIMEN
  4. CYCLOSPORINE [Suspect]
     Indication: IMMUNOSUPPRESSION
  5. METHOTREXATE [Suspect]

REACTIONS (2)
  - GRAFT VERSUS HOST DISEASE [None]
  - HERPES ZOSTER [None]
